FAERS Safety Report 6653848-7 (Version None)
Quarter: 2010Q1

REPORT INFORMATION
  Report Type: 
  Country: None (occurrence: None)
  Receive Date: 20100326
  Receipt Date: 20100317
  Transmission Date: 20100710
  Serious: Yes (Hospitalization)
  Sender: FDA-Public Use
  Company Number: B0642725A

PATIENT
  Sex: Male
  Weight: 95 kg

DRUGS (2)
  1. PAZOPANIB [Suspect]
     Indication: NEOPLASM
     Dosage: 800MG PER DAY
     Route: 048
     Dates: start: 20090922
  2. GEMCITABINE HCL [Suspect]
     Indication: NEOPLASM
     Dosage: 1211MGM2 PER DAY
     Route: 042
     Dates: start: 20090921

REACTIONS (2)
  - DIARRHOEA [None]
  - PYREXIA [None]
